FAERS Safety Report 23975834 (Version 1)
Quarter: 2024Q2

REPORT INFORMATION
  Report Type: Spontaneous
  Country: ES (occurrence: A1)
  Receive Date: 20240614
  Receipt Date: 20240614
  Transmission Date: 20240716
  Serious: Yes (Life-Threatening, Hospitalization, Other)
  Sender: FDA-Public Use
  Company Number: A1-Breckenridge Pharmaceutical, Inc.-2158105

PATIENT

DRUGS (9)
  1. OMEPRAZOLE [Suspect]
     Active Substance: DONEPEZIL HYDROCHLORIDE\OMEPRAZOLE\OMEPRAZOLE MAGNESIUM
     Indication: Upper gastrointestinal haemorrhage
     Route: 048
  2. RAMIPRIL [Concomitant]
     Active Substance: RAMIPRIL
  3. METFORMIN [Concomitant]
     Active Substance: METFORMIN HYDROCHLORIDE
  4. ATORVASTATIN CALCIUM [Concomitant]
     Active Substance: ATORVASTATIN CALCIUM
  5. BISOPROLOL. [Concomitant]
     Active Substance: BISOPROLOL FUMARATE
  6. FUROSEMIDE [Concomitant]
     Active Substance: FUROSEMIDE
  7. SPIRONOLACTONE [Concomitant]
     Active Substance: SPIRONOLACTONE
  8. DAPAGLIFLOZIN [Concomitant]
     Active Substance: DAPAGLIFLOZIN
  9. ELIQUIS [Concomitant]
     Active Substance: APIXABAN

REACTIONS (2)
  - Cardiac arrest [Unknown]
  - Off label use [Unknown]
